FAERS Safety Report 18273436 (Version 1)
Quarter: 2020Q3

REPORT INFORMATION
  Report Type: Report from Study
  Country: US (occurrence: US)
  Receive Date: 20200916
  Receipt Date: 20200916
  Transmission Date: 20201103
  Serious: Yes (Hospitalization)
  Sender: FDA-Public Use
  Company Number: US-PFIZER INC-2020353223

PATIENT
  Age: 80 Year
  Sex: Female

DRUGS (7)
  1. 5?FLUOROURACIL [FLUOROURACIL] [Suspect]
     Active Substance: FLUOROURACIL
     Dosage: 3960 MG, Q2WEEKS
     Route: 042
     Dates: start: 20180509, end: 20180821
  2. BEVACIZUMAB. [Suspect]
     Active Substance: BEVACIZUMAB
     Indication: COLORECTAL CANCER METASTATIC
     Dosage: 300 MG, Q2WEEKS
     Route: 042
     Dates: start: 20180509, end: 20180821
  3. IRINOTECAN HCL [Suspect]
     Active Substance: IRINOTECAN HYDROCHLORIDE
     Indication: COLORECTAL CANCER METASTATIC
     Dosage: CAMPTOSAR, 148 MG, Q2WEEKS
     Route: 042
     Dates: start: 20180509, end: 20180821
  4. BBI 608 [Suspect]
     Active Substance: NAPABUCASIN
     Indication: COLORECTAL CANCER METASTATIC
     Dosage: 240 MG, 2X/DAY
     Route: 048
     Dates: start: 20180507
  5. LEUCOVORIN [FOLINIC ACID] [Concomitant]
     Active Substance: LEUCOVORIN
     Indication: COLORECTAL CANCER METASTATIC
     Dosage: 708 MG, Q2WEEKS
     Route: 042
     Dates: start: 20180509, end: 20180509
  6. BBI 608 [Suspect]
     Active Substance: NAPABUCASIN
     Dosage: 160 MG, 2X/DAY
     Route: 048
     Dates: end: 20180902
  7. 5?FLUOROURACIL [FLUOROURACIL] [Suspect]
     Active Substance: FLUOROURACIL
     Indication: COLORECTAL CANCER METASTATIC
     Dosage: 708 MG, Q2WEEKS
     Route: 042
     Dates: start: 20180509, end: 20180509

REACTIONS (2)
  - Hypokalaemia [Recovered/Resolved]
  - Abdominal pain [Recovered/Resolved]

NARRATIVE: CASE EVENT DATE: 20180902
